FAERS Safety Report 21957437 (Version 3)
Quarter: 2024Q2

REPORT INFORMATION
  Report Type: Report from Study
  Country: DE (occurrence: DE)
  Receive Date: 20230206
  Receipt Date: 20240530
  Transmission Date: 20240716
  Serious: Yes (Death, Hospitalization, Other)
  Sender: FDA-Public Use
  Company Number: None

PATIENT
  Age: 12 Year

DRUGS (2)
  1. ARIPIPRAZOLE [Interacting]
     Active Substance: ARIPIPRAZOLE
     Indication: Intellectual disability
     Dosage: UNKNOWN
     Route: 065
  2. GUANFACINE [Interacting]
     Active Substance: GUANFACINE
     Indication: Emotional disorder
     Dosage: UNKNOWN
     Route: 065

REACTIONS (4)
  - Electrocardiogram QT prolonged [Fatal]
  - Drug interaction [Fatal]
  - Off label use [Fatal]
  - Medication error [Fatal]
